FAERS Safety Report 5852304-3 (Version None)
Quarter: 2008Q3

REPORT INFORMATION
  Report Type: 
  Country: None (occurrence: None)
  Receive Date: 20080819
  Receipt Date: 20080806
  Transmission Date: 20090109
  Serious: Yes (Death, Hospitalization, Other)
  Sender: FDA-Public Use
  Company Number: 51314

PATIENT
  Age: 73 Year
  Sex: Female

DRUGS (2)
  1. METHOTREXATE [Suspect]
     Indication: RHEUMATOID ARTHRITIS
  2. CYCLOSPORINE INJ. USP 250MG/5ML [Suspect]

REACTIONS (15)
  - BRONCHOPNEUMONIA [None]
  - CYTOMEGALOVIRUS INFECTION [None]
  - ELECTROCARDIOGRAM ABNORMAL [None]
  - GENERAL PHYSICAL HEALTH DETERIORATION [None]
  - HEPATIC FUNCTION ABNORMAL [None]
  - LEUKOPENIA [None]
  - LUNG INFECTION [None]
  - LYMPHOCYTE COUNT ABNORMAL [None]
  - OBSTRUCTIVE AIRWAYS DISORDER [None]
  - OEDEMA PERIPHERAL [None]
  - PNEUMOCYSTIS JIROVECI INFECTION [None]
  - PNEUMONIA [None]
  - PULMONARY TUBERCULOSIS [None]
  - RENAL CANCER [None]
  - TUBERCULOSIS [None]
